FAERS Safety Report 8784423 (Version 1)
Quarter: 2012Q4

REPORT INFORMATION
  Report Type: Spontaneous
  Country: GB (occurrence: None)
  Receive Date: 20120830
  Receipt Date: 20120830
  Transmission Date: 20130627
  Serious: Yes (Disabling)
  Sender: FDA-Public Use
  Company Number: GER/UKI/12/0025463

PATIENT
  Age: 22 Year
  Sex: Male
  Weight: 69.85 kg

DRUGS (2)
  1. FINASTERIDE (FINASTERIDE) [Suspect]
     Indication: HAIR LOSS
     Route: 048
     Dates: start: 20120515, end: 20120615
  2. RANITIDINE (RANITIDINE) [Concomitant]

REACTIONS (2)
  - Testicular atrophy [None]
  - Emotional distress [None]
